FAERS Safety Report 12836788 (Version 3)
Quarter: 2017Q1

REPORT INFORMATION
  Report Type: Report from Study
  Country: US (occurrence: US)
  Receive Date: 20161011
  Receipt Date: 20170117
  Transmission Date: 20170428
  Serious: Yes (Hospitalization, Other)
  Sender: FDA-Public Use
  Company Number: US-ACTELION-A-US2016-143468

PATIENT
  Age: 38 Year
  Sex: Female

DRUGS (2)
  1. VELETRI [Suspect]
     Active Substance: EPOPROSTENOL
     Indication: PULMONARY HYPERTENSION
     Dosage: 14 NG/KG, PER MIN
     Route: 042
     Dates: start: 20160809
  2. SILDENAFIL. [Concomitant]
     Active Substance: SILDENAFIL

REACTIONS (10)
  - Decreased appetite [Unknown]
  - Pain in jaw [Unknown]
  - Fluid retention [Unknown]
  - Diarrhoea [Unknown]
  - Headache [Unknown]
  - Spinal pain [Unknown]
  - Cholelithiasis [Unknown]
  - Rash [Unknown]
  - Malaise [Unknown]
  - Weight decreased [Unknown]
